FAERS Safety Report 13080114 (Version 1)
Quarter: 2017Q1

REPORT INFORMATION
  Report Type: Report from Study
  Country: BR (occurrence: BR)
  Receive Date: 20170103
  Receipt Date: 20170103
  Transmission Date: 20170428
  Serious: Yes (Other)
  Sender: FDA-Public Use
  Company Number: BR-ALEXION-A201405087

PATIENT
  Age: 31 Year
  Sex: Female

DRUGS (3)
  1. SOLIRIS [Suspect]
     Active Substance: ECULIZUMAB
     Dosage: EVERY 10 DAYS
     Route: 042
     Dates: start: 20140318
  2. SOLIRIS [Suspect]
     Active Substance: ECULIZUMAB
     Indication: PAROXYSMAL NOCTURNAL HAEMOGLOBINURIA
     Dosage: UNK
     Route: 042
     Dates: start: 20130712
  3. SOLIRIS [Suspect]
     Active Substance: ECULIZUMAB
     Dosage: UNK UNK, Q2W
     Route: 042
     Dates: start: 20140318

REACTIONS (8)
  - Haemoglobinuria [Unknown]
  - Fatigue [Unknown]
  - Myalgia [Unknown]
  - Extravascular haemolysis [Not Recovered/Not Resolved]
  - Haemolysis [Unknown]
  - Drug ineffective [Unknown]
  - Inappropriate schedule of drug administration [Unknown]
  - Influenza [Unknown]

NARRATIVE: CASE EVENT DATE: 2014
